FAERS Safety Report 13545546 (Version 3)
Quarter: 2017Q3

REPORT INFORMATION
  Report Type: Report from Study
  Country: US (occurrence: US)
  Receive Date: 20170515
  Receipt Date: 20170921
  Transmission Date: 20171127
  Serious: Yes (Death, Hospitalization, Other)
  Sender: FDA-Public Use
  Company Number: PHEH2017US013632

PATIENT
  Age: 18 Year
  Sex: Male
  Weight: 50 kg

DRUGS (3)
  1. VOTRIENT [Suspect]
     Active Substance: PAZOPANIB HYDROCHLORIDE
     Indication: CONNECTIVE TISSUE NEOPLASM
     Dosage: 600 MG, QD
     Route: 048
     Dates: start: 20161012, end: 20170522
  2. VOTRIENT [Suspect]
     Active Substance: PAZOPANIB HYDROCHLORIDE
     Indication: SOFT TISSUE NEOPLASM
  3. VOTRIENT [Suspect]
     Active Substance: PAZOPANIB HYDROCHLORIDE
     Indication: DESMOPLASTIC SMALL ROUND CELL TUMOUR

REACTIONS (7)
  - Desmoplastic small round cell tumour [Fatal]
  - Pancreatic disorder [Unknown]
  - Retroperitoneal neoplasm [Unknown]
  - Metastases to lymph nodes [Unknown]
  - Malignant neoplasm progression [Fatal]
  - Abdominal pain [Unknown]
  - Hepatic enzyme increased [Unknown]

NARRATIVE: CASE EVENT DATE: 20170501
